FAERS Safety Report 7908856-2 (Version None)
Quarter: 2011Q4

REPORT INFORMATION
  Report Type: 
  Country: None (occurrence: None)
  Receive Date: 20111111
  Receipt Date: 20111102
  Transmission Date: 20120403
  Serious: Yes (Hospitalization)
  Sender: FDA-Public Use
  Company Number: US-BAYER-2011-053864

PATIENT
  Age: 40 Year
  Sex: Female
  Weight: 126 kg

DRUGS (11)
  1. AMBIEN [Concomitant]
     Indication: INSOMNIA
  2. LYRICA [Concomitant]
  3. FLONASE [Concomitant]
  4. YASMIN [Suspect]
     Indication: PREMENSTRUAL SYNDROME
  5. IBUPROFEN [Concomitant]
     Indication: ARTHRALGIA
     Dosage: UNK UNK, TID
     Dates: start: 20050101, end: 20091202
  6. CENTRUM [Concomitant]
     Dosage: UNK UNK, QD
     Dates: start: 20071128, end: 20101110
  7. CALCIUM +VIT D [Concomitant]
     Dosage: UNK
     Dates: start: 20071128, end: 20101120
  8. YAZ [Suspect]
     Indication: PRODUCT USED FOR UNKNOWN INDICATION
     Dosage: UNK
     Route: 048
     Dates: start: 20080307, end: 20090606
  9. YASMIN [Suspect]
     Indication: CONTRACEPTION
     Dosage: UNK
     Route: 048
     Dates: start: 20041204, end: 20080307
  10. YASMIN [Suspect]
     Indication: MENSTRUAL CYCLE MANAGEMENT
  11. CEFUROXIME [Concomitant]
     Dosage: 500 MG, UNK
     Dates: start: 20090423

REACTIONS (2)
  - PULMONARY EMBOLISM [None]
  - DEEP VEIN THROMBOSIS [None]
